FAERS Safety Report 6702017-0 (Version None)
Quarter: 2010Q2

REPORT INFORMATION
  Report Type: 
  Country: None (occurrence: None)
  Receive Date: 20100429
  Receipt Date: 20100420
  Transmission Date: 20101027
  Serious: Yes (Other)
  Sender: FDA-Public Use
  Company Number: KR-PFIZER INC-2010049992

PATIENT
  Sex: Male

DRUGS (1)
  1. SUTENE [Suspect]
     Dosage: 50 MG, UNK
     Route: 048
     Dates: start: 20080101

REACTIONS (3)
  - DIARRHOEA [None]
  - METASTASIS [None]
  - OEDEMA PERIPHERAL [None]
